FAERS Safety Report 5038334-2 (Version None)
Quarter: 2006Q2

REPORT INFORMATION
  Report Type: 
  Country: None (occurrence: None)
  Receive Date: 20060627
  Receipt Date: 20060627
  Transmission Date: 20061013
  Serious: Yes (Hospitalization)
  Sender: FDA-Public Use
  Company Number: None

PATIENT
  Age: 51 Year
  Sex: Male
  Weight: 95.709 kg

DRUGS (1)
  1. IBUPROFEN [Suspect]
     Indication: FIBROMYALGIA
     Dosage: PO 1200 MG TO 1800 MG PER DAY
     Route: 048

REACTIONS (8)
  - BLOOD PRESSURE ORTHOSTATIC [None]
  - DIZZINESS [None]
  - DYSPEPSIA [None]
  - GASTROINTESTINAL ULCER [None]
  - HAEMATEMESIS [None]
  - HYPERHIDROSIS [None]
  - MELAENA [None]
  - NAUSEA [None]
